FAERS Safety Report 25773604 (Version 1)
Quarter: 2025Q3

REPORT INFORMATION
  Report Type: Spontaneous
  Country: US (occurrence: None)
  Receive Date: 20250908
  Receipt Date: 20250908
  Transmission Date: 20251020
  Serious: Yes (Death)
  Sender: FDA-CTU
  Company Number: None

PATIENT
  Age: 73 Year
  Sex: Male

DRUGS (1)
  1. EPCLUSA [Suspect]
     Active Substance: SOFOSBUVIR\VELPATASVIR
     Indication: Hepatitis
     Dosage: FREQUENCY : DAILY;?
     Route: 048
     Dates: start: 20250225, end: 20250421

REACTIONS (1)
  - Death [None]

NARRATIVE: CASE EVENT DATE: 20250610
